FAERS Safety Report 22294455 (Version 2)
Quarter: 2024Q2

REPORT INFORMATION
  Report Type: Spontaneous
  Country: US (occurrence: US)
  Receive Date: 20230508
  Receipt Date: 20240415
  Transmission Date: 20240715
  Serious: No
  Sender: FDA-Public Use
  Company Number: US-ASTELLAS-2022US021490

PATIENT
  Age: 74 Year
  Sex: Female

DRUGS (4)
  1. LEXISCAN [Suspect]
     Active Substance: REGADENOSON
     Indication: Cardiac stress test
     Dosage: ONE DOSE FOR STRESS TEST
     Route: 042
     Dates: start: 202201, end: 202201
  2. LEXISCAN [Suspect]
     Active Substance: REGADENOSON
     Indication: Cardiac stress test
     Dosage: ONE DOSE FOR STRESS TEST
     Route: 042
     Dates: start: 202201, end: 202201
  3. LEXISCAN [Suspect]
     Active Substance: REGADENOSON
     Indication: Cardiac stress test
     Dosage: ONE DOSE FOR STRESS TEST
     Route: 042
     Dates: start: 202201, end: 202201
  4. LEXISCAN [Suspect]
     Active Substance: REGADENOSON
     Indication: Cardiac stress test
     Dosage: ONE DOSE FOR STRESS TEST
     Route: 042
     Dates: start: 202201, end: 202201

REACTIONS (2)
  - Chest pain [Recovered/Resolved]
  - Dyspnoea [Recovered/Resolved]

NARRATIVE: CASE EVENT DATE: 20220101
